FAERS Safety Report 4291160-4 (Version None)
Quarter: 2004Q1

REPORT INFORMATION
  Report Type: 
  Country: None (occurrence: None)
  Receive Date: 20040209
  Receipt Date: 20040123
  Transmission Date: 20041129
  Serious: Yes (Death)
  Sender: FDA-Public Use
  Company Number: 701597

PATIENT
  Age: 66 Year
  Sex: Male
  Weight: 122.4712 kg

DRUGS (1)
  1. AMEVIVE [Suspect]
     Indication: PSORIASIS
     Dosage: 7.5 MG QW IV
     Route: 042
     Dates: start: 20030722, end: 20040101

REACTIONS (1)
  - DEATH [None]
